FAERS Safety Report 23286956 (Version 2)
Quarter: 2023Q4

REPORT INFORMATION
  Report Type: Spontaneous
  Country: CA (occurrence: CA)
  Receive Date: 20231212
  Receipt Date: 20231218
  Transmission Date: 20240110
  Serious: Yes (Hospitalization)
  Sender: FDA-Public Use
  Company Number: CA-JNJFOC-20231214131

PATIENT
  Age: 62 Year
  Sex: Male

DRUGS (4)
  1. REMICADE [Suspect]
     Active Substance: INFLIXIMAB
     Indication: Ankylosing spondylitis
     Route: 041
  2. ADALIMUMAB [Suspect]
     Active Substance: ADALIMUMAB\ISOPROPYL ALCOHOL
     Indication: Ankylosing spondylitis
     Route: 058
  3. METHOTREXATE [Concomitant]
     Active Substance: METHOTREXATE
     Indication: Ankylosing spondylitis
  4. SECUKINUMAB [Concomitant]
     Active Substance: SECUKINUMAB
     Indication: Ankylosing spondylitis

REACTIONS (4)
  - Blood creatinine increased [Recovering/Resolving]
  - Colitis [Recovering/Resolving]
  - Microcytic anaemia [Recovering/Resolving]
  - Therapy non-responder [Recovering/Resolving]
